FAERS Safety Report 12650234 (Version 5)
Quarter: 2016Q4

REPORT INFORMATION
  Report Type: Report from Study
  Country: US (occurrence: US)
  Receive Date: 20160813
  Receipt Date: 20161104
  Transmission Date: 20170207
  Serious: Yes (Other)
  Sender: FDA-Public Use
  Company Number: US-009507513-1608USA003367

PATIENT
  Sex: Female
  Weight: 66.21 kg

DRUGS (6)
  1. PEMBROLIZUMAB. [Suspect]
     Active Substance: PEMBROLIZUMAB
     Indication: MALIGNANT MELANOMA
     Dosage: UNK, EVERY THREE WEEKS FOR 30 MINUTES
     Route: 042
     Dates: start: 20160515, end: 20160825
  2. ONDANSETRON HYDROCHLORIDE. [Concomitant]
     Active Substance: ONDANSETRON HYDROCHLORIDE
  3. PREDNISONE. [Concomitant]
     Active Substance: PREDNISONE
     Dosage: 5 MG, QD
     Route: 048
  4. LOSARTIN [Concomitant]
     Active Substance: LOSARTAN
     Dosage: UNK
  5. CYANOCOBALAMIN. [Concomitant]
     Active Substance: CYANOCOBALAMIN
  6. PYRIDOXINE [Concomitant]
     Active Substance: PYRIDOXINE

REACTIONS (8)
  - Memory impairment [Not Recovered/Not Resolved]
  - Hypoaesthesia [Recovering/Resolving]
  - Deafness [Unknown]
  - Fatigue [Not Recovered/Not Resolved]
  - Skin lesion [Recovering/Resolving]
  - Hyperhidrosis [Unknown]
  - Back pain [Unknown]
  - Food intolerance [Unknown]

NARRATIVE: CASE EVENT DATE: 2016
